FAERS Safety Report 11486580 (Version 2)
Quarter: 2015Q4

REPORT INFORMATION
  Report Type: Spontaneous
  Country: US (occurrence: None)
  Receive Date: 20150909
  Receipt Date: 20151008
  Transmission Date: 20160304
  Serious: Yes (Other)
  Sender: FDA-Public Use
  Company Number: ADR-2015-01636

PATIENT
  Age: 17 Year
  Sex: Male

DRUGS (1)
  1. LIORESAL [Suspect]
     Active Substance: BACLOFEN
     Dosage: 70 MCG/DAY

REACTIONS (3)
  - Ultrasound abdomen abnormal [None]
  - Medical device site cellulitis [None]
  - Post procedural infection [None]
